FAERS Safety Report 18022753 (Version 1)
Quarter: 2020Q3

REPORT INFORMATION
  Report Type: Spontaneous
  Country: DE (occurrence: DE)
  Receive Date: 20200714
  Receipt Date: 20200714
  Transmission Date: 20201103
  Serious: Yes (Hospitalization)
  Sender: FDA-Public Use
  Company Number: DE-NAPPMUNDI-GBR-2020-0077720

PATIENT
  Age: 84 Year
  Sex: Female
  Weight: 60 kg

DRUGS (10)
  1. RIVAROXABAN [Concomitant]
     Active Substance: RIVAROXABAN
     Dosage: 15 MG, Q12H (15 MG, 1?0?1?0)
     Route: 048
  2. DEXAMETHASON                       /00016001/ [Concomitant]
     Active Substance: DEXAMETHASONE
     Dosage: 4 MG, DAILY (4 MG, 1?0?0?0, TABLETTEN)
     Route: 048
  3. KALINOR?RETARD P [Concomitant]
     Dosage: 1800 MG, DAILY (600 MG, 1?1?1?0)
     Route: 048
  4. METAMIZOL                          /06276704/ [Concomitant]
     Active Substance: METAMIZOLE SODIUM
     Dosage: 500 MG, Q6H (500 MG, 1?1?1?1, TABLETTEN)
     Route: 048
  5. AMLODIPIN                          /00972401/ [Concomitant]
     Active Substance: AMLODIPINE BESYLATE
     Dosage: 5 MG, Q12H (5 MG, 1?0?1?0)
     Route: 048
  6. OXYCODONE HYDROCHLORIDE. [Suspect]
     Active Substance: OXYCODONE HYDROCHLORIDE
     Indication: PRODUCT USED FOR UNKNOWN INDICATION
     Dosage: 10 MG, Q12H (10 MG, 1?0?1?0, RETARD?TABLETTEN)
     Route: 048
  7. METOCLOPRAMID                      /00041901/ [Suspect]
     Active Substance: METOCLOPRAMIDE
     Indication: PRODUCT USED FOR UNKNOWN INDICATION
     Dosage: 10 MG, Q12H (10 MG, 1?0?1?0, TABLETTEN)
     Route: 048
  8. OPIPRAMOL [Suspect]
     Active Substance: OPIPRAMOL
     Indication: PRODUCT USED FOR UNKNOWN INDICATION
     Dosage: 50 MG, DAILY (50 MG, 1?0?0?0)
     Route: 048
  9. CANDESARTAN. [Concomitant]
     Active Substance: CANDESARTAN
     Dosage: 8 MG, Q12H (16 MG, 0.5?0?0.5?0)
     Route: 048
  10. PANTOPRAZOL [Concomitant]
     Active Substance: PANTOPRAZOLE SODIUM
     Dosage: 40 MG, DAILY (40 MG, 1?0?0?0)
     Route: 048

REACTIONS (6)
  - Confusional state [Unknown]
  - Umbilical discharge [Unknown]
  - General physical health deterioration [Unknown]
  - Pyrexia [Unknown]
  - Omphalitis [Unknown]
  - Dehydration [Unknown]
